FAERS Safety Report 8132517-0 (Version None)
Quarter: 2012Q1

REPORT INFORMATION
  Report Type: 
  Country: None (occurrence: None)
  Receive Date: 20120213
  Receipt Date: 20120210
  Transmission Date: 20120608
  Serious: Yes (Other)
  Sender: FDA-Public Use
  Company Number: US-US-EMD SERONO, INC.-7108477

PATIENT
  Sex: Male
  Weight: 83 kg

DRUGS (6)
  1. EGRIFTA [Suspect]
     Route: 058
     Dates: start: 20111028
  2. NORVIR [Concomitant]
     Indication: HIV INFECTION
     Dates: start: 20110815
  3. INTELENCE [Concomitant]
     Indication: HIV INFECTION
     Dates: start: 20110815
  4. EGRIFTA [Suspect]
     Indication: LIPODYSTROPHY ACQUIRED
     Route: 058
     Dates: start: 20110628, end: 20110828
  5. ISENTRESS [Concomitant]
     Indication: HIV INFECTION
     Dates: start: 20110815
  6. PREZISTA [Concomitant]
     Indication: HIV INFECTION
     Dates: start: 20110815

REACTIONS (1)
  - MYOCARDIAL INFARCTION [None]
